FAERS Safety Report 10039091 (Version 1)
Quarter: 2014Q1

REPORT INFORMATION
  Report Type: Spontaneous
  Country: FR (occurrence: FR)
  Receive Date: 20140326
  Receipt Date: 20140326
  Transmission Date: 20141002
  Serious: Yes (Hospitalization)
  Sender: FDA-Public Use
  Company Number: PHHY2014FR034142

PATIENT
  Age: 67 Year
  Sex: Male

DRUGS (14)
  1. ESIDREX [Suspect]
     Dosage: 25 MG, UNK
     Route: 048
     Dates: start: 201305, end: 201307
  2. KARDEGIC [Concomitant]
     Dosage: 75 MG, UNK
  3. HYDROCORTISONE [Concomitant]
     Dosage: 10 MG, UNK
  4. LOXEN [Concomitant]
     Dosage: 50 MG, UNK
  5. APROVEL [Concomitant]
     Dosage: 150 MG, UNK
  6. TAHOR [Concomitant]
     Dosage: 20 MG, UNK
  7. XATRAL [Concomitant]
     Dosage: 10 MG, UNK
  8. LYRICA [Concomitant]
     Dosage: 150 MG, UNK
  9. LYRICA [Concomitant]
     Dosage: 50 MG, UNK
  10. SKENAN [Concomitant]
     Dosage: 30 MG, UNK
  11. SEVREDOL [Concomitant]
     Dosage: 10 MG, UNK
  12. PARACETAMOL [Concomitant]
     Dosage: 1000 MG, UNK
  13. STERDEX [Concomitant]
     Dosage: 10 MG, UNK
  14. DUPHALAC [Concomitant]
     Dosage: IF NEEDED

REACTIONS (1)
  - Gout [Recovered/Resolved]
